FAERS Safety Report 4469055-2 (Version None)
Quarter: 2004Q4

REPORT INFORMATION
  Report Type: 
  Country: None (occurrence: None)
  Receive Date: 20041001
  Receipt Date: 20040924
  Transmission Date: 20050328
  Serious: Yes (Death, Hospitalization)
  Sender: FDA-Public Use
  Company Number: 2004235241NL

PATIENT
  Age: 66 Year
  Sex: Female
  Weight: 53 kg

DRUGS (9)
  1. IRINOTECAN [Suspect]
     Indication: COLORECTAL CANCER
     Dosage: 350 MG/M2, CYCLIC, CYCLE 3, IV
     Route: 042
     Dates: start: 20040615, end: 20040724
  2. FOLIC ACID [Concomitant]
  3. VITAMIN B-12 [Concomitant]
  4. PARACETAMOL [Concomitant]
  5. PANTOZOL (PANTOPRAZOLE SODIUM) [Concomitant]
  6. DEXAMETHASONE [Concomitant]
  7. PARACETAMOL WITH CODEINE [Concomitant]
  8. CELEBREX [Concomitant]
  9. ROFECOXIB [Concomitant]

REACTIONS (12)
  - BLOOD CREATININE INCREASED [None]
  - BLOOD UREA INCREASED [None]
  - C-REACTIVE PROTEIN INCREASED [None]
  - DIARRHOEA [None]
  - GENERAL PHYSICAL HEALTH DETERIORATION [None]
  - HAEMATOCRIT DECREASED [None]
  - HAEMOGLOBIN DECREASED [None]
  - LEUKOPENIA [None]
  - RESPIRATORY FAILURE [None]
  - THERAPY NON-RESPONDER [None]
  - THROMBOCYTOPENIA [None]
  - VOMITING [None]
